FAERS Safety Report 14368052 (Version 1)
Quarter: 2018Q1

REPORT INFORMATION
  Report Type: Spontaneous
  Country: BR (occurrence: BR)
  Receive Date: 20180109
  Receipt Date: 20180109
  Transmission Date: 20180509
  Serious: Yes (Hospitalization)
  Sender: FDA-Public Use
  Company Number: BR-PFIZER INC-2018006467

PATIENT
  Age: 34 Year
  Sex: Male

DRUGS (1)
  1. LYRICA [Suspect]
     Active Substance: PREGABALIN
     Dosage: 75 MG, DAILY (1 TABLET PER NIGHT)
     Route: 048

REACTIONS (4)
  - Sciatica [Recovered/Resolved]
  - Product use issue [Unknown]
  - Osteoarthritis [Recovered/Resolved]
  - Spinal osteoarthritis [Recovered/Resolved]
